FAERS Safety Report 22279319 (Version 1)
Quarter: 2023Q2

REPORT INFORMATION
  Report Type: Spontaneous
  Country: US (occurrence: None)
  Receive Date: 20230502
  Receipt Date: 20230502
  Transmission Date: 20230722
  Serious: Yes (Death)
  Sender: FDA-Public Use
  Company Number: None

PATIENT
  Age: 86 Year
  Sex: Female

DRUGS (1)
  1. PIRFENIDONE [Suspect]
     Active Substance: PIRFENIDONE
     Indication: Idiopathic pulmonary fibrosis
     Dosage: FREQUENCY : TWICE A DAY;?
     Route: 048
     Dates: start: 20161122, end: 20230417

REACTIONS (15)
  - Rib fracture [None]
  - Ankle fracture [None]
  - Traumatic liver injury [None]
  - Blood loss anaemia [None]
  - Hypervolaemia [None]
  - Dyspnoea [None]
  - Pleural effusion [None]
  - Pneumothorax [None]
  - Haemothorax [None]
  - White blood cell count increased [None]
  - Lung infiltration [None]
  - Pulmonary oedema [None]
  - Acute respiratory distress syndrome [None]
  - Blood culture positive [None]
  - Escherichia infection [None]

NARRATIVE: CASE EVENT DATE: 20230417
